FAERS Safety Report 5509691-5 (Version None)
Quarter: 2007Q4

REPORT INFORMATION
  Report Type: 
  Country: None (occurrence: None)
  Receive Date: 20071107
  Receipt Date: 20071107
  Transmission Date: 20080405
  Serious: Yes (Hospitalization)
  Sender: FDA-Public Use
  Company Number: None

PATIENT
  Age: 53 Year
  Sex: Male
  Weight: 78 kg

DRUGS (3)
  1. CETUXIMAB [Suspect]
     Indication: PANCREATIC CARCINOMA
     Dosage: 250 MG.PER METER SQUARED WEEEKLY IV DRIP
     Route: 041
     Dates: start: 20071005, end: 20071101
  2. GEMCITABINE [Suspect]
     Indication: PANCREATIC CARCINOMA
     Dosage: 50 MG PER METER SQUARED TWICE A WEEK IV DRIP
     Route: 041
     Dates: start: 20071011, end: 20071105
  3. RADIOTHERAPY [Concomitant]

REACTIONS (1)
  - FEBRILE NEUTROPENIA [None]
